FAERS Safety Report 9140074 (Version 1)
Quarter: 2013Q1

REPORT INFORMATION
  Report Type: Other
  Country: JP (occurrence: JP)
  Receive Date: 20130305
  Receipt Date: 20130305
  Transmission Date: 20140127
  Serious: Yes (Hospitalization)
  Sender: FDA-Public Use
  Company Number: JP-ACTELION-A-CH2013-80086

PATIENT
  Age: 28 Year
  Sex: Female

DRUGS (3)
  1. TRACLEER [Suspect]
     Indication: PULMONARY ARTERIAL HYPERTENSION
     Route: 048
  2. SILDENAFIL [Concomitant]
  3. BERAPROST [Concomitant]

REACTIONS (11)
  - Right ventricular failure [Unknown]
  - Dyspnoea [Unknown]
  - Pulmonary arterial pressure increased [Unknown]
  - Abdominal distension [Unknown]
  - Pleural effusion [Unknown]
  - Ascites [Unknown]
  - Hepatomegaly [Unknown]
  - Decreased appetite [Unknown]
  - Mixed connective tissue disease [Unknown]
  - Pyrexia [Unknown]
  - Concomitant disease aggravated [Unknown]
